FAERS Safety Report 16992906 (Version 1)
Quarter: 2019Q4

REPORT INFORMATION
  Report Type: Spontaneous
  Country: US (occurrence: US)
  Receive Date: 20191104
  Receipt Date: 20191104
  Transmission Date: 20200122
  Serious: Yes (Hospitalization, Disabling)
  Sender: FDA-Public Use
  Company Number: None

PATIENT
  Age: 61 Year
  Sex: Female
  Weight: 108 kg

DRUGS (1)
  1. ESCITALOPRAM [Suspect]
     Active Substance: ESCITALOPRAM OXALATE
     Indication: ANXIETY
     Dosage: ?          QUANTITY:90 TABLET(S);?
     Route: 048
     Dates: start: 20190823, end: 20190827

REACTIONS (7)
  - Gait inability [None]
  - Neuralgia [None]
  - Asthenia [None]
  - Pain in extremity [None]
  - Incontinence [None]
  - Product substitution issue [None]
  - Diplegia [None]

NARRATIVE: CASE EVENT DATE: 20190827
